FAERS Safety Report 10170811 (Version 2)
Quarter: 2014Q2

REPORT INFORMATION
  Report Type: Spontaneous
  Country: US (occurrence: US)
  Receive Date: 20140514
  Receipt Date: 20140626
  Transmission Date: 20141212
  Serious: Yes (Other)
  Sender: FDA-Public Use
  Company Number: US-ROCHE-1398317

PATIENT
  Age: 40 Year
  Sex: Female

DRUGS (24)
  1. XOLAIR [Suspect]
     Indication: ASTHMA
     Dosage: 250 IN RIGHT ARM, 150 MG IN LEFT ARM
     Route: 065
     Dates: start: 201308, end: 201404
  2. XOLAIR [Suspect]
     Dosage: 250 IN RIGHT ARM, 150 MG IN LEFT ARM
     Route: 065
     Dates: start: 20140429
  3. HYCODAN (UNITED STATES) [Concomitant]
     Dosage: 5-1.5 MG/ML AS NEEDED
     Route: 048
  4. ESIDRIX [Concomitant]
     Route: 048
  5. PREVACID [Concomitant]
     Route: 048
  6. THEO-DUR [Concomitant]
     Route: 048
  7. RIZATRIPTAN [Concomitant]
     Route: 048
  8. ISOPTIN SR [Concomitant]
     Route: 048
  9. PREDNISONE [Concomitant]
     Route: 048
  10. LIPITOR [Concomitant]
     Route: 048
  11. SYMBICORT [Concomitant]
     Dosage: 160-4.5 MG, 2 PUFFS
     Route: 065
  12. QVAR [Concomitant]
     Dosage: 4 PUFFS INHALE
     Route: 065
  13. RANITIDINE HCL [Concomitant]
     Route: 048
  14. MONTELUKAST [Concomitant]
     Route: 048
  15. SPIRIVA [Concomitant]
     Dosage: INHALE 1 CAPSULE
     Route: 065
  16. FLONASE NASAL SPRAY [Concomitant]
     Route: 045
  17. PATANASE [Concomitant]
     Route: 045
  18. LASIX [Concomitant]
     Route: 048
  19. EPIPEN [Concomitant]
     Route: 065
  20. DUONEB [Concomitant]
     Dosage: 0.5-2.5 MG , 2.5 ML INHALE
     Route: 065
  21. TEMOVATE [Concomitant]
     Route: 061
  22. CHOLECALCIFEROL [Concomitant]
     Route: 048
  23. PULMICORT [Concomitant]
     Route: 065
  24. VENTOLIN [Concomitant]
     Dosage: 1-2 PUFFS AS NEEDED
     Route: 065

REACTIONS (1)
  - Anaphylactic reaction [Unknown]
